FAERS Safety Report 17291937 (Version 1)
Quarter: 2020Q1

REPORT INFORMATION
  Report Type: Spontaneous
  Country: US (occurrence: US)
  Receive Date: 20200118
  Receipt Date: 20200118
  Transmission Date: 20200409
  Serious: Yes (Hospitalization)
  Sender: FDA-Public Use
  Company Number: None

PATIENT
  Age: 30 Year
  Sex: Female
  Weight: 87.75 kg

DRUGS (5)
  1. IRON [Concomitant]
     Active Substance: IRON
  2. VITAMIN B12 [Concomitant]
     Active Substance: CYANOCOBALAMIN
  3. CALCIUM D [Concomitant]
     Active Substance: CALCIUM\VITAMIN D
  4. MAGNESIUM [Concomitant]
     Active Substance: MAGNESIUM
  5. CIPROFLOXACIN. [Suspect]
     Active Substance: CIPROFLOXACIN
     Indication: URINARY TRACT INFECTION
     Dates: end: 20191111

REACTIONS (13)
  - Insomnia [None]
  - Tendon pain [None]
  - Gait disturbance [None]
  - Dysstasia [None]
  - Back pain [None]
  - Palpitations [None]
  - Tremor [None]
  - Muscular weakness [None]
  - Depression [None]
  - Paraesthesia [None]
  - Arthralgia [None]
  - Myalgia [None]
  - Hypoaesthesia [None]

NARRATIVE: CASE EVENT DATE: 20191111
